FAERS Safety Report 15544923 (Version 1)
Quarter: 2018Q4

REPORT INFORMATION
  Report Type: Spontaneous
  Country: None (occurrence: GB)
  Receive Date: 20181024
  Receipt Date: 20181024
  Transmission Date: 20190205
  Serious: Yes (Hospitalization)
  Sender: FDA-Public Use
  Company Number: GB-ORION CORPORATION ORION PHARMA-TREX2018-2939

PATIENT
  Age: 64 Year
  Sex: Male

DRUGS (16)
  1. FUMARIC ACID [Suspect]
     Active Substance: FUMARIC ACID
     Indication: ERYTHRODERMIC PSORIASIS
  2. SULFASALAZINE. [Suspect]
     Active Substance: SULFASALAZINE
     Indication: RHEUMATOID ARTHRITIS
  3. ACITRETIN. [Suspect]
     Active Substance: ACITRETIN
     Indication: PSORIASIS
     Route: 065
  4. FUMARIC ACID [Suspect]
     Active Substance: FUMARIC ACID
     Indication: PSORIATIC ARTHROPATHY
  5. METHOTREXATE. [Suspect]
     Active Substance: METHOTREXATE
     Indication: ERYTHRODERMIC PSORIASIS
  6. ACITRETIN. [Suspect]
     Active Substance: ACITRETIN
     Indication: RHEUMATOID ARTHRITIS
  7. SULFASALAZINE. [Suspect]
     Active Substance: SULFASALAZINE
     Indication: ERYTHRODERMIC PSORIASIS
  8. FUMARIC ACID [Suspect]
     Active Substance: FUMARIC ACID
     Indication: PSORIASIS
  9. SULFASALAZINE. [Suspect]
     Active Substance: SULFASALAZINE
     Indication: PSORIATIC ARTHROPATHY
  10. METHOTREXATE. [Suspect]
     Active Substance: METHOTREXATE
     Indication: PSORIASIS
     Route: 065
  11. METHOTREXATE. [Suspect]
     Active Substance: METHOTREXATE
     Indication: PSORIATIC ARTHROPATHY
  12. SULFASALAZINE. [Suspect]
     Active Substance: SULFASALAZINE
     Indication: PSORIASIS
     Route: 065
  13. METHOTREXATE. [Suspect]
     Active Substance: METHOTREXATE
     Indication: RHEUMATOID ARTHRITIS
  14. ACITRETIN. [Suspect]
     Active Substance: ACITRETIN
     Indication: PSORIATIC ARTHROPATHY
  15. ACITRETIN. [Suspect]
     Active Substance: ACITRETIN
     Indication: ERYTHRODERMIC PSORIASIS
  16. FUMARIC ACID [Suspect]
     Active Substance: FUMARIC ACID
     Indication: RHEUMATOID ARTHRITIS
     Route: 065

REACTIONS (3)
  - Drug intolerance [Unknown]
  - Erythrodermic psoriasis [Recovering/Resolving]
  - Drug ineffective [Unknown]
